FAERS Safety Report 11928309 (Version 1)
Quarter: 2016Q1

REPORT INFORMATION
  Report Type: Spontaneous
  Country: BR (occurrence: BR)
  Receive Date: 20160119
  Receipt Date: 20160119
  Transmission Date: 20160526
  Serious: Yes (Other)
  Sender: FDA-Public Use
  Company Number: PHHY2015BR144445

PATIENT
  Age: 77 Year
  Sex: Female

DRUGS (1)
  1. DIOVAN [Suspect]
     Active Substance: VALSARTAN
     Indication: BLOOD PRESSURE ABNORMAL
     Dosage: UNK
     Route: 065

REACTIONS (7)
  - Depression [Unknown]
  - Blood cholesterol abnormal [Unknown]
  - Malaise [Unknown]
  - Blood pressure inadequately controlled [Unknown]
  - Panic disorder [Unknown]
  - Dementia Alzheimer^s type [Unknown]
  - Blood pressure increased [Unknown]
